FAERS Safety Report 7965260-9 (Version None)
Quarter: 2011Q4

REPORT INFORMATION
  Report Type: 
  Country: None (occurrence: None)
  Receive Date: 20111208
  Receipt Date: 20111201
  Transmission Date: 20120403
  Serious: Yes (Hospitalization, Other)
  Sender: FDA-Public Use
  Company Number: US-BAYER-2011-106052

PATIENT
  Age: 67 Year
  Sex: Female
  Weight: 70.9 kg

DRUGS (17)
  1. LOSARTAN POTASSIUM [Concomitant]
  2. OXYCODONE HCL [Concomitant]
  3. SORAFENIB (RAF KINASE INHIBITOR) [Suspect]
     Indication: NON-SMALL CELL LUNG CANCER
     Dosage: 400 MG, BID
     Route: 048
     Dates: start: 20110928, end: 20111010
  4. WARFARIN SODIUM [Concomitant]
     Indication: PULMONARY EMBOLISM
     Dosage: UNK
     Dates: start: 20110328
  5. SORAFENIB (RAF KINASE INHIBITOR) [Suspect]
     Dosage: 400 MG, QD
     Route: 048
     Dates: start: 20111011, end: 20111025
  6. CLOBETASOL [Concomitant]
  7. LEVOTHYROXINE SODIUM [Concomitant]
  8. AMLODIPINE [Concomitant]
  9. TYLENOL W/ CODEINE NO. 3 [Concomitant]
  10. BENZONATATE [Concomitant]
  11. FOLIC ACID [Concomitant]
  12. LORAZEPAM [Concomitant]
  13. UREA [Concomitant]
  14. ALBUTEROL [Concomitant]
  15. SENOKOT-S [DOCUSATE SODIUM,SENNA ALEXANDRINA] [Concomitant]
  16. OMEPRAZOLE [Concomitant]
  17. MIRALAX [Concomitant]

REACTIONS (7)
  - NON-SMALL CELL LUNG CANCER [None]
  - RASH [None]
  - DYSPNOEA [None]
  - PLEURAL EFFUSION [None]
  - HYPERTENSION [None]
  - PULMONARY EMBOLISM [None]
  - DEVICE OCCLUSION [None]
